FAERS Safety Report 5397677-3 (Version None)
Quarter: 2007Q3

REPORT INFORMATION
  Report Type: 
  Country: None (occurrence: None)
  Receive Date: 20070723
  Receipt Date: 20070723
  Transmission Date: 20080115
  Serious: Yes (Other)
  Sender: FDA-Public Use
  Company Number: None

PATIENT
  Sex: Male

DRUGS (8)
  1. REVLIMID [Suspect]
     Indication: MYELODYSPLASTIC SYNDROME
     Dosage: 5MG DAILY PO
     Route: 048
  2. TERAZOSIN HCL [Concomitant]
  3. ISORDIL [Concomitant]
  4. BISOPROLOL FUMARATE [Concomitant]
  5. LASIX [Concomitant]
  6. LOVASTATIN [Concomitant]
  7. COZAAR [Concomitant]
  8. NITROGLYCERIN [Concomitant]

REACTIONS (3)
  - ANAEMIA [None]
  - RECTAL HAEMORRHAGE [None]
  - THROMBOCYTOPENIA [None]
